FAERS Safety Report 18046110 (Version 6)
Quarter: 2021Q1

REPORT INFORMATION
  Report Type: Report from Study
  Country: DE (occurrence: DE)
  Receive Date: 20200720
  Receipt Date: 20210128
  Transmission Date: 20210419
  Serious: Yes (Death, Hospitalization)
  Sender: FDA-Public Use
  Company Number: DE-CELGENEUS-DEU-20200700798

PATIENT
  Age: 55 Year
  Sex: Female
  Weight: 81.3 kg

DRUGS (16)
  1. DEXAMETHASONE. [Suspect]
     Active Substance: DEXAMETHASONE
     Indication: PLASMA CELL MYELOMA
     Dosage: 40 MILLIGRAM
     Route: 065
     Dates: start: 20200423, end: 20200426
  2. COTRIMAZOL [Concomitant]
     Active Substance: SULFAMETHOXAZOLE\TRIMETHOPRIM
     Indication: INFECTION PROPHYLAXIS
     Dosage: 960 MILLIGRAM
     Route: 048
     Dates: start: 20060710, end: 20200424
  3. NEUPOGEN [Concomitant]
     Active Substance: FILGRASTIM
     Dosage: 30 MIU E
     Route: 065
     Dates: start: 20200423, end: 20200423
  4. THALIDOMIDE [Suspect]
     Active Substance: THALIDOMIDE
     Indication: PLASMA CELL MYELOMA
     Dosage: 100 MILLIGRAM
     Route: 048
     Dates: start: 20200423, end: 20200426
  5. FLUDARABINE [Suspect]
     Active Substance: FLUDARABINE PHOSPHATE
     Indication: PLASMA CELL MYELOMA
     Dosage: 56.1 MILLIGRAM
     Route: 041
     Dates: start: 20181121, end: 20181123
  6. CYCLOPHOSPHAMIDE. [Suspect]
     Active Substance: CYCLOPHOSPHAMIDE
     Indication: PLASMA CELL MYELOMA
     Dosage: 561 MILLIGRAM
     Route: 041
     Dates: start: 20181121, end: 20181123
  7. CYCLOPHOSPHAMIDE. [Suspect]
     Active Substance: CYCLOPHOSPHAMIDE
     Indication: PLASMA CELL MYELOMA
     Dosage: 400 MILLIGRAM/SQ. METER
     Route: 065
     Dates: start: 20200423, end: 20200426
  8. ETOPOSIDE. [Suspect]
     Active Substance: ETOPOSIDE
     Indication: PLASMA CELL MYELOMA
     Route: 065
     Dates: start: 20200423, end: 20200426
  9. NEUPOGEN [Concomitant]
     Active Substance: FILGRASTIM
     Dosage: 30 MIU E
     Route: 065
     Dates: start: 20200402, end: 20200404
  10. DOXORUBICIN [Suspect]
     Active Substance: DOXORUBICIN
     Indication: PLASMA CELL MYELOMA
     Dosage: 10 MILLIGRAM
     Route: 065
     Dates: start: 20200423, end: 20200426
  11. NEUPOGEN [Concomitant]
     Active Substance: FILGRASTIM
     Dosage: 48 MIU E
     Route: 065
     Dates: start: 20200422, end: 20200422
  12. BB2121 [Suspect]
     Active Substance: INVESTIGATIONAL PRODUCT
     Indication: PLASMA CELL MYELOMA
     Dosage: 339.25 X 10^6 CAR + T CELLS
     Route: 041
     Dates: start: 20181126, end: 20181126
  13. BORTEZOMIB. [Suspect]
     Active Substance: BORTEZOMIB
     Indication: PLASMA CELL MYELOMA
     Dosage: 1 MILLIGRAM/SQ. METER
     Route: 065
     Dates: start: 20200423, end: 20200426
  14. NEUPOGEN [Concomitant]
     Active Substance: FILGRASTIM
     Indication: PRODUCT USED FOR UNKNOWN INDICATION
     Dosage: 30 MIU E
     Route: 065
     Dates: start: 20200317, end: 20200319
  15. CISPLATIN. [Suspect]
     Active Substance: CISPLATIN
     Indication: PLASMA CELL MYELOMA
     Dosage: 10 MILLIGRAM/SQ. METER
     Route: 065
     Dates: start: 20200423, end: 20200426
  16. POTASSIUM CHLORIDE. [Concomitant]
     Active Substance: POTASSIUM CHLORIDE
     Indication: HYPOKALAEMIA
     Route: 065
     Dates: start: 20200427, end: 20200427

REACTIONS (2)
  - Pneumonia pseudomonal [Not Recovered/Not Resolved]
  - Septic shock [Fatal]

NARRATIVE: CASE EVENT DATE: 20200427
